FAERS Safety Report 5869126-X (Version None)
Quarter: 2008Q3

REPORT INFORMATION
  Report Type: 
  Country: None (occurrence: None)
  Receive Date: 20080903
  Receipt Date: 20080820
  Transmission Date: 20090109
  Serious: Yes (Death, Other)
  Sender: FDA-Public Use
  Company Number: JP-ABBOTT-08P-087-0461693-00

PATIENT
  Age: 74 Year
  Sex: Male

DRUGS (17)
  1. LEUPROLIDE ACETATE [Suspect]
     Indication: PROSTATE CANCER STAGE IV
     Route: 058
     Dates: start: 20061121, end: 20070507
  2. BICALUTAMIDE [Concomitant]
     Indication: PROSTATE CANCER STAGE IV
     Route: 048
     Dates: start: 20061011, end: 20070507
  3. MAGNESIUM OXIDE [Concomitant]
     Indication: CONSTIPATION
     Route: 048
     Dates: start: 20061103, end: 20061204
  4. DIMETICONE [Concomitant]
     Indication: CONSTIPATION
     Route: 048
     Dates: start: 20070707, end: 20070708
  5. DIMETICONE [Concomitant]
     Dates: start: 20061103, end: 20061204
  6. FLUTAMIDE [Concomitant]
     Indication: PROSTATE CANCER STAGE IV
     Route: 048
     Dates: start: 20070507, end: 20070706
  7. ESTRAMUSTINE PHOSPHATE SODIUM [Concomitant]
     Indication: PROSTATE CANCER STAGE IV
     Route: 048
     Dates: start: 20070706, end: 20070724
  8. LOXOPROFEN [Concomitant]
     Indication: DRUG USE FOR UNKNOWN INDICATION
     Route: 048
     Dates: start: 20070521, end: 20070527
  9. LOXOPROFEN [Concomitant]
     Dates: start: 20070625, end: 20070701
  10. MARZULENE S [Concomitant]
     Indication: DRUG USE FOR UNKNOWN INDICATION
     Route: 048
     Dates: start: 20070521, end: 20070527
  11. URSODEOXYCHOLIC ACID [Concomitant]
     Indication: DRUG USE FOR UNKNOWN INDICATION
     Route: 048
     Dates: start: 20070530, end: 20070530
  12. MARZULENE S [Concomitant]
     Route: 048
     Dates: start: 20070625, end: 20070701
  13. SODIUM PICOSULFATE [Concomitant]
     Indication: CONSTIPATION
     Route: 048
     Dates: start: 20070604
  14. SODIUM PICOSULFATE [Concomitant]
     Route: 048
     Dates: start: 20070607
  15. SODIUM PICOSULFATE [Concomitant]
     Route: 048
     Dates: start: 20070706
  16. SODIUM PICOSULFATE [Concomitant]
     Route: 048
     Dates: start: 20070727
  17. DICLOFENAC DIETHYLAMINE [Concomitant]
     Indication: DRUG USE FOR UNKNOWN INDICATION
     Route: 054
     Dates: start: 20070729, end: 20070731

REACTIONS (4)
  - METASTATIC NEOPLASM [None]
  - NEOPLASM MALIGNANT [None]
  - PROSTATE CANCER STAGE IV [None]
  - PROSTATIC SPECIFIC ANTIGEN INCREASED [None]
